FAERS Safety Report 7435390-9 (Version None)
Quarter: 2011Q2

REPORT INFORMATION
  Report Type: 
  Country: None (occurrence: None)
  Receive Date: 20110425
  Receipt Date: 20091130
  Transmission Date: 20111010
  Serious: Yes (Death, Other)
  Sender: FDA-Public Use
  Company Number: US-BAYER-200941218NA

PATIENT
  Age: 74 Year
  Sex: Male
  Weight: 90.703 kg

DRUGS (9)
  1. MANNITOL [Concomitant]
     Dosage: 25 G, UNK
     Route: 042
     Dates: start: 20020124
  2. COUMADIN [Concomitant]
  3. RED BLOOD CELLS, CONCENTRATED [Concomitant]
     Dosage: 1 U, UNK
     Dates: start: 20020124
  4. TRASYLOL [Suspect]
     Indication: CORONARY ARTERY BYPASS
     Dosage: UNK
     Route: 042
     Dates: start: 20020118
  5. ACETYLSALICYLIC ACID SRT [Concomitant]
     Dosage: UNK
     Dates: start: 19970101, end: 20020101
  6. AMIODARONE [Concomitant]
  7. HEPARIN [Concomitant]
     Dosage: 15000 U, UNK
     Route: 042
     Dates: start: 20020124
  8. NEO SYNEPHRIN [Concomitant]
     Dosage: 400
     Route: 042
     Dates: start: 20020124
  9. LANOXIN [Concomitant]

REACTIONS (14)
  - STRESS [None]
  - DEATH [None]
  - CARDIAC FAILURE [None]
  - MULTI-ORGAN FAILURE [None]
  - ANHEDONIA [None]
  - RENAL IMPAIRMENT [None]
  - RENAL INJURY [None]
  - UNEVALUABLE EVENT [None]
  - PAIN [None]
  - RENAL FAILURE [None]
  - EMOTIONAL DISTRESS [None]
  - FEAR [None]
  - INJURY [None]
  - ANXIETY [None]
